FAERS Safety Report 12378542 (Version 2)
Quarter: 2016Q3

REPORT INFORMATION
  Report Type: Spontaneous
  Country: US (occurrence: US)
  Receive Date: 20160517
  Receipt Date: 20160901
  Transmission Date: 20161109
  Serious: No
  Sender: FDA-Public Use
  Company Number: US-RELYPSA-RLY2016000212

PATIENT
  Sex: Female

DRUGS (14)
  1. ASPIRIN 81 [Concomitant]
     Active Substance: ASPIRIN
  2. COLACE [Concomitant]
     Active Substance: DOCUSATE SODIUM
  3. CALCIUM 500+D [Concomitant]
     Active Substance: CALCIUM\VITAMIN D
  4. LISINOPRIL. [Concomitant]
     Active Substance: LISINOPRIL
  5. FERROUS SULFATE. [Concomitant]
     Active Substance: FERROUS SULFATE
  6. VELTASSA [Suspect]
     Active Substance: PATIROMER
     Indication: HYPERKALAEMIA
     Dosage: 8.4 G, QD
     Route: 048
     Dates: start: 20160303
  7. LASIX [Concomitant]
     Active Substance: FUROSEMIDE
  8. ALLOPURINOL. [Concomitant]
     Active Substance: ALLOPURINOL
  9. SODIUM BICARBONATE. [Concomitant]
     Active Substance: SODIUM BICARBONATE
  10. FISH OIL [Concomitant]
     Active Substance: FISH OIL
  11. CRESTOR [Concomitant]
     Active Substance: ROSUVASTATIN CALCIUM
  12. COUMADINE [Concomitant]
     Active Substance: WARFARIN SODIUM
  13. GLUCOSAMINE + CHONDROITIN COMPLEX [Concomitant]
  14. PEPCID                             /00305201/ [Concomitant]
     Active Substance: ALUMINUM HYDROXIDE\MAGNESIUM CARBONATE

REACTIONS (1)
  - Diarrhoea [Unknown]
